FAERS Safety Report 20695790 (Version 1)
Quarter: 2022Q2

REPORT INFORMATION
  Report Type: Spontaneous
  Country: US (occurrence: US)
  Receive Date: 20220411
  Receipt Date: 20220411
  Transmission Date: 20220721
  Serious: Yes (Hospitalization)
  Sender: FDA-Public Use
  Company Number: US-BAYER-2022A049958

PATIENT
  Age: 43 Year
  Sex: Female

DRUGS (5)
  1. ADEMPAS [Suspect]
     Active Substance: RIOCIGUAT
     Indication: Pulmonary hypertension
     Dosage: 2 MG, TID
     Route: 048
     Dates: start: 20220113, end: 20220404
  2. AMBRISENTAN [Concomitant]
     Active Substance: AMBRISENTAN
  3. SELEXIPAG [Concomitant]
     Active Substance: SELEXIPAG
  4. TORSEMIDE [Concomitant]
     Active Substance: TORSEMIDE
  5. SPIRONOLACTONE [Concomitant]
     Active Substance: SPIRONOLACTONE

REACTIONS (8)
  - Connective tissue disorder [None]
  - Acute respiratory failure [None]
  - Vision blurred [None]
  - Cough [None]
  - Nausea [None]
  - Vomiting [None]
  - Dyspnoea exertional [None]
  - Nocturnal dyspnoea [None]

NARRATIVE: CASE EVENT DATE: 20220403
